FAERS Safety Report 10189531 (Version 2)
Quarter: 2014Q2

REPORT INFORMATION
  Report Type: Spontaneous
  Country: US (occurrence: US)
  Receive Date: 20140522
  Receipt Date: 20140607
  Transmission Date: 20141212
  Serious: No
  Sender: FDA-Public Use
  Company Number: US-009507513-1405USA011426

PATIENT
  Age: 69 Year
  Sex: Female
  Weight: 67.12 kg

DRUGS (14)
  1. OXYTROL FOR WOMEN [Suspect]
     Indication: HYPERTONIC BLADDER
     Dosage: 1 DF, Q4D
     Route: 062
     Dates: start: 20140422, end: 20140503
  2. LEVOTHYROXINE SODIUM [Concomitant]
     Indication: THYROID DISORDER
     Dosage: UNK, UNKNOWN
  3. METOPROLOL [Concomitant]
     Indication: HYPERTENSION
     Dosage: UNK, UNKNOWN
  4. EVISTA [Concomitant]
     Indication: OSTEOPOROSIS
     Dosage: UNK, UNKNOWN
  5. VITAL CALCIUM COMPLETE [Concomitant]
     Indication: OSTEOPOROSIS
     Dosage: UNK, UNKNOWN
  6. PAROXETINE [Concomitant]
     Indication: DEPRESSION
     Dosage: UNK, UNKNOWN
  7. CORICIDIN HBP COUGH AND COLD [Concomitant]
     Indication: SEASONAL ALLERGY
     Dosage: UNK, UNKNOWN
  8. ASPIRIN [Concomitant]
     Indication: PERIPHERAL EMBOLISM
     Dosage: 325 MG, UNKNOWN
  9. REPLENEX [Concomitant]
     Indication: PRODUCT USED FOR UNKNOWN INDICATION
     Dosage: UNK, UNKNOWN
  10. MELALEUCA VITALITY MULTIVITAMIN AND MINERAL WOMEN [Concomitant]
     Indication: PRODUCT USED FOR UNKNOWN INDICATION
     Dosage: UNK, UNKNOWN
  11. MELALEUCA PHYTOMEGA [Concomitant]
     Indication: PRODUCT USED FOR UNKNOWN INDICATION
     Dosage: UNK, UNKNOWN
  12. OMEGA-3 [Concomitant]
     Indication: PRODUCT USED FOR UNKNOWN INDICATION
     Dosage: UNK, UNKNOWN
  13. CELLULOSE, OXIDIZED [Concomitant]
     Indication: PRODUCT USED FOR UNKNOWN INDICATION
     Dosage: UNK, UNKNOWN
  14. MELALEUCA NUTRAVIEW [Concomitant]
     Indication: PRODUCT USED FOR UNKNOWN INDICATION
     Dosage: UNK, UNKNOWN

REACTIONS (2)
  - Condition aggravated [Not Recovered/Not Resolved]
  - Drug ineffective [Unknown]
